FAERS Safety Report 6965079-1 (Version None)
Quarter: 2010Q3

REPORT INFORMATION
  Report Type: 
  Country: None (occurrence: None)
  Receive Date: 20100903
  Receipt Date: 20100831
  Transmission Date: 20110219
  Serious: Yes (Life-Threatening, Hospitalization)
  Sender: FDA-Public Use
  Company Number: US-B.I. PHARMACEUTICALS,INC./RIDGEFIELD-2010-BP-08545BP

PATIENT
  Sex: Female

DRUGS (14)
  1. SPIRIVA [Suspect]
     Indication: BRONCHITIS CHRONIC
     Dosage: 18 MCG
     Route: 055
     Dates: start: 20040101, end: 20080101
  2. SPIRIVA [Suspect]
     Indication: CHRONIC OBSTRUCTIVE PULMONARY DISEASE
     Dosage: 18 MCG
     Route: 055
     Dates: start: 20080101
  3. AVELOX [Suspect]
     Indication: BRONCHITIS CHRONIC
     Route: 048
     Dates: start: 20080101, end: 20080101
  4. ZITHROMAX [Concomitant]
     Indication: BRONCHITIS CHRONIC
     Route: 048
     Dates: start: 20100720
  5. PRILOSEC [Concomitant]
     Indication: GASTROOESOPHAGEAL REFLUX DISEASE
     Route: 048
     Dates: start: 20100720
  6. LISINOPRIL [Concomitant]
     Indication: HYPERTENSION
     Dosage: 20 MG
     Route: 048
  7. CHLORTHALIDONE [Concomitant]
     Indication: FLUID IMBALANCE
     Dosage: 25 MG
     Route: 048
  8. XANAX [Concomitant]
     Indication: ANXIETY
     Dosage: 0.5 MG
     Route: 048
  9. PROZAC [Concomitant]
     Indication: DEPRESSION
     Dosage: 60 MG
     Route: 048
  10. NEOMYCIN/POLYMIXIN/HYDROCODONE [Concomitant]
     Indication: EAR PAIN
     Dosage: 60 MG
  11. ADVAIR DISKUS 100/50 [Concomitant]
     Indication: CHRONIC OBSTRUCTIVE PULMONARY DISEASE
     Route: 055
  12. VENTOLIN [Concomitant]
     Indication: CHRONIC OBSTRUCTIVE PULMONARY DISEASE
     Route: 055
  13. FLEXERIL [Concomitant]
     Indication: BACK PAIN
     Route: 048
  14. DARVOCET-N 100 [Concomitant]
     Indication: BACK PAIN
     Route: 048

REACTIONS (9)
  - APPARENT DEATH [None]
  - DIABETES MELLITUS [None]
  - DRY EYE [None]
  - DRY MOUTH [None]
  - HYPERSENSITIVITY [None]
  - PIGMENTATION DISORDER [None]
  - PNEUMONIA [None]
  - SKIN DISCOLOURATION [None]
  - THROMBOCYTOPENIA [None]
